FAERS Safety Report 11608913 (Version 1)
Quarter: 2015Q4

REPORT INFORMATION
  Report Type: Report from Study
  Country: US (occurrence: US)
  Receive Date: 20151007
  Receipt Date: 20151007
  Transmission Date: 20160304
  Serious: Yes (Death, Other)
  Sender: FDA-Public Use
  Company Number: US-009507513-1999-07-0505

PATIENT
  Age: 37 Year
  Sex: Female
  Weight: 71 kg

DRUGS (2)
  1. INTRON A [Suspect]
     Active Substance: INTERFERON ALFA-2B
     Indication: CHRONIC HEPATITIS C
     Dosage: DOSE: 5 MU TIW, DURATION: 1 YEAR(S)
     Dates: start: 19980529, end: 19990506
  2. RIBAVIRIN. [Suspect]
     Active Substance: RIBAVIRIN
     Indication: CHRONIC HEPATITIS C
     Dosage: DOSE: 1000 MG PO, DURATION: 1 YEAR(S)
     Route: 048
     Dates: start: 19980529, end: 19990506

REACTIONS (1)
  - Foetal death [Fatal]

NARRATIVE: CASE EVENT DATE: 19990812
